FAERS Safety Report 5675540-8 (Version None)
Quarter: 2008Q2

REPORT INFORMATION
  Report Type: 
  Country: None (occurrence: None)
  Receive Date: 20080314
  Receipt Date: 20070921
  Transmission Date: 20081010
  Serious: Yes (Other)
  Sender: FDA-Public Use
  Company Number: 02100-USA-07-0012

PATIENT
  Age: 58 Year
  Sex: Male
  Weight: 79.3795 kg

DRUGS (6)
  1. PLETAL [Suspect]
     Indication: POOR PERIPHERAL CIRCULATION
     Dosage: 1 DF DAILY ORAL
     Route: 048
  2. CADUET [Suspect]
     Indication: BLOOD CHOLESTEROL
     Dosage: 1 DF DAILY
  3. CADUET [Suspect]
     Indication: BLOOD PRESSURE
     Dosage: 1 DF DAILY
  4. PLAVIX [Suspect]
     Indication: OBSTRUCTION
     Dosage: 1 DF DAILY
  5. TOPROL-XL [Suspect]
  6. CHANTIX [Suspect]
     Indication: SMOKING CESSATION THERAPY
     Dosage: 1 DF DAILY
     Dates: start: 20070312

REACTIONS (2)
  - LUNG NEOPLASM MALIGNANT [None]
  - NAUSEA [None]
